FAERS Safety Report 17413158 (Version 3)
Quarter: 2020Q3

REPORT INFORMATION
  Report Type: Report from Study
  Country: JP (occurrence: JP)
  Receive Date: 20200213
  Receipt Date: 20200708
  Transmission Date: 20201102
  Serious: Yes (Other)
  Sender: FDA-Public Use
  Company Number: JP-ASTELLAS-2020JP002934

PATIENT
  Age: 54 Year
  Sex: Male
  Weight: 64 kg

DRUGS (3)
  1. ASP2215 [Suspect]
     Active Substance: GILTERITINIB
     Indication: ACUTE MYELOID LEUKAEMIA RECURRENT
     Route: 048
     Dates: start: 20191004, end: 20200106
  2. ASP2215 [Suspect]
     Active Substance: GILTERITINIB
     Route: 048
     Dates: start: 20200325
  3. ASP2215 [Suspect]
     Active Substance: GILTERITINIB
     Route: 048
     Dates: start: 20200311, end: 20200324

REACTIONS (1)
  - Pneumocystis jirovecii pneumonia [Recovered/Resolved]

NARRATIVE: CASE EVENT DATE: 20191121
